FAERS Safety Report 21348222 (Version 2)
Quarter: 2022Q3

REPORT INFORMATION
  Report Type: Report from Study
  Country: AU (occurrence: AU)
  Receive Date: 20220919
  Receipt Date: 20220920
  Transmission Date: 20221027
  Serious: Yes (Hospitalization)
  Sender: FDA-Public Use
  Company Number: AU-NOVARTISPH-NVSC2022AU209372

PATIENT
  Age: 58 Year
  Sex: Female

DRUGS (1)
  1. MAYZENT [Suspect]
     Active Substance: SIPONIMOD
     Indication: Secondary progressive multiple sclerosis
     Dosage: 2 MG, QD
     Route: 048
     Dates: start: 20220907

REACTIONS (5)
  - Aphasia [Unknown]
  - Cerebrovascular accident [Unknown]
  - Balance disorder [Unknown]
  - Memory impairment [Unknown]
  - Glassy eyes [Unknown]

NARRATIVE: CASE EVENT DATE: 20220915
